FAERS Safety Report 18729545 (Version 1)
Quarter: 2021Q1

REPORT INFORMATION
  Report Type: Report from Study
  Country: US (occurrence: US)
  Receive Date: 20210112
  Receipt Date: 20210112
  Transmission Date: 20210419
  Serious: Yes (Other)
  Sender: FDA-Public Use
  Company Number: US-ASTRAZENECA-2021A002870

PATIENT
  Sex: Male

DRUGS (1)
  1. LYNPARZA [Suspect]
     Active Substance: OLAPARIB
     Indication: PROSTATE CANCER
     Route: 048
     Dates: start: 20200907

REACTIONS (6)
  - Bone lesion [Recovering/Resolving]
  - Malignant neoplasm progression [Unknown]
  - Product dose omission issue [Unknown]
  - Dysphagia [Unknown]
  - Nausea [Recovered/Resolved]
  - Oropharyngeal discomfort [Unknown]
